FAERS Safety Report 10209877 (Version 1)
Quarter: 2014Q2

REPORT INFORMATION
  Report Type: Spontaneous
  Country: ES (occurrence: ES)
  Receive Date: 20140602
  Receipt Date: 20140602
  Transmission Date: 20141212
  Serious: Yes (Other)
  Sender: FDA-Public Use
  Company Number: ES-CELGENEUS-144-21880-14053582

PATIENT
  Age: 71 Year
  Sex: Male

DRUGS (8)
  1. REVLIMID [Suspect]
     Indication: THROMBOCYTOPENIA
     Route: 048
     Dates: start: 201110
  2. REVLIMID [Suspect]
     Indication: PLASMA CELL MYELOMA
  3. DEXAMETHASONE [Suspect]
     Indication: PLASMA CELL MYELOMA
     Route: 065
     Dates: start: 201005
  4. DEXAMETHASONE [Suspect]
     Route: 065
     Dates: start: 201110
  5. DEXAMETHASONE [Suspect]
     Dosage: .7143 MILLIGRAM
     Route: 065
     Dates: start: 2011
  6. ZOLENDRONIC ACID [Suspect]
     Indication: PRODUCT USED FOR UNKNOWN INDICATION
     Route: 065
     Dates: start: 201005
  7. BORTEZOMIB [Suspect]
     Indication: PLASMA CELL MYELOMA
     Route: 065
     Dates: start: 201005
  8. ENOXAPARIN [Concomitant]
     Indication: PRODUCT USED FOR UNKNOWN INDICATION
     Route: 065
     Dates: start: 201110

REACTIONS (5)
  - Osteonecrosis of jaw [Unknown]
  - Nervousness [Unknown]
  - Insomnia [Unknown]
  - Asthenia [Unknown]
  - Muscle spasms [Unknown]
